FAERS Safety Report 10147206 (Version 4)
Quarter: 2014Q3

REPORT INFORMATION
  Report Type: Spontaneous
  Country: US (occurrence: US)
  Receive Date: 20140501
  Receipt Date: 20140725
  Transmission Date: 20150326
  Serious: Yes (Death, Hospitalization, Other)
  Sender: FDA-Public Use
  Company Number: US-INCYTE CORPORATION-2014IN001139

PATIENT
  Age: 70 Year
  Sex: Male

DRUGS (9)
  1. SERTRALINE [Concomitant]
     Active Substance: SERTRALINE HYDROCHLORIDE
  2. MORPHINE SULFATE. [Concomitant]
     Active Substance: MORPHINE SULFATE
     Dosage: 15 MG, QD
     Route: 048
  3. ASPIRIN. [Concomitant]
     Active Substance: ASPIRIN
  4. LEVOTHYROXINE [Concomitant]
     Active Substance: LEVOTHYROXINE
  5. PRAVASTATIN [Concomitant]
     Active Substance: PRAVASTATIN\PRAVASTATIN SODIUM
  6. JAKAFI [Suspect]
     Active Substance: RUXOLITINIB
     Indication: MYELOPROLIFERATIVE DISORDER
     Dosage: 10 MG, BID
     Route: 048
     Dates: start: 20140308
  7. EFFIENT [Concomitant]
     Active Substance: PRASUGREL HYDROCHLORIDE
     Indication: STENT PLACEMENT
  8. POTASSIUM [Concomitant]
     Active Substance: POTASSIUM
  9. XARELTO [Concomitant]
     Active Substance: RIVAROXABAN

REACTIONS (16)
  - Cholecystitis [Fatal]
  - Pneumonia [Recovered/Resolved]
  - Vomiting [Unknown]
  - Abdominal discomfort [Unknown]
  - Dyspnoea exertional [Recovering/Resolving]
  - Intestinal obstruction [Fatal]
  - Muscular weakness [Recovering/Resolving]
  - Nausea [Unknown]
  - Multi-organ failure [Fatal]
  - Pulmonary embolism [Recovering/Resolving]
  - Asthenia [Recovering/Resolving]
  - Leukocytosis [Unknown]
  - Myopathy [Unknown]
  - Cardiac arrest [Fatal]
  - Anaemia [Recovering/Resolving]
  - White blood cell count decreased [Unknown]

NARRATIVE: CASE EVENT DATE: 2014
